FAERS Safety Report 4839075-4 (Version None)
Quarter: 2005Q4

REPORT INFORMATION
  Report Type: 
  Country: None (occurrence: None)
  Receive Date: 20051129
  Receipt Date: 20050124
  Transmission Date: 20060501
  Serious: Yes (Death)
  Sender: FDA-Public Use
  Company Number: PHBS2005SE01249

PATIENT
  Age: 36 Year
  Sex: Male

DRUGS (6)
  1. CISORDINOL [Suspect]
     Dosage: 5 MG/D
     Route: 048
     Dates: start: 19890101, end: 20040909
  2. LEPONEX [Suspect]
     Indication: SCHIZOPHRENIA
     Dosage: 600 MG/D
     Route: 048
     Dates: start: 19940101
  3. ATARAX [Concomitant]
     Route: 048
  4. AKINETON [Concomitant]
     Dosage: 2 MG/D
     Route: 048
  5. STESOLID [Concomitant]
     Route: 048
  6. CIPRALEX [Suspect]
     Indication: NEUROSIS
     Dosage: 20 MG/D
     Route: 048
     Dates: start: 20040701, end: 20040909

REACTIONS (5)
  - ARTERIOSCLEROSIS CORONARY ARTERY [None]
  - BRONCHITIS [None]
  - CARDIOMEGALY [None]
  - CARDIOPULMONARY FAILURE [None]
  - MYOCARDIAL ISCHAEMIA [None]
